FAERS Safety Report 25339604 (Version 2)
Quarter: 2025Q3

REPORT INFORMATION
  Report Type: Spontaneous
  Country: EU (occurrence: EU)
  Receive Date: 20250521
  Receipt Date: 20250720
  Transmission Date: 20251021
  Serious: Yes (Hospitalization, Other)
  Sender: AMGEN
  Company Number: EU-UCBSA-2025029047

PATIENT
  Age: 65 Year
  Sex: Female

DRUGS (1)
  1. EVENITY [Suspect]
     Active Substance: ROMOSOZUMAB-AQQG
     Indication: Osteoporosis
     Route: 058
     Dates: start: 202501

REACTIONS (4)
  - Spinal disorder [Unknown]
  - Paraparesis [Unknown]
  - Sensory disturbance [Unknown]
  - Areflexia [Unknown]

NARRATIVE: CASE EVENT DATE: 20250511
